FAERS Safety Report 6206619-X (Version None)
Quarter: 2009Q2

REPORT INFORMATION
  Report Type: 
  Country: None (occurrence: None)
  Receive Date: 20090528
  Receipt Date: 20090520
  Transmission Date: 20091009
  Serious: Yes (Other)
  Sender: FDA-Public Use
  Company Number: US-JNJFOC-20090505155

PATIENT
  Sex: Male
  Weight: 95.26 kg

DRUGS (6)
  1. FENTANYL TRANSDERMAL SYSTEM [Suspect]
     Indication: PAIN
     Route: 062
  2. FENTANYL TRANSDERMAL SYSTEM [Suspect]
     Indication: PAIN
     Route: 062
  3. DURAGESIC-100 [Suspect]
     Indication: PAIN
     Route: 062
  4. BALSALAZIDE [Concomitant]
     Indication: CROHN'S DISEASE
     Route: 048
  5. LORAZEPAM [Concomitant]
     Indication: ANXIETY
     Dosage: 1 MG AS NEEDED
     Route: 048
  6. HYDROMORPHONE HCL [Concomitant]
     Indication: PAIN
     Route: 048

REACTIONS (14)
  - ANKYLOSING SPONDYLITIS [None]
  - APPLICATION SITE PERSPIRATION [None]
  - BLOOD CHOLESTEROL INCREASED [None]
  - CRYING [None]
  - DEPRESSION [None]
  - DRUG ADMINISTERED AT INAPPROPRIATE SITE [None]
  - HYPERTENSION [None]
  - MUSCLE SPASMS [None]
  - OSTEOARTHRITIS [None]
  - PAIN [None]
  - TREATMENT NONCOMPLIANCE [None]
  - VITAMIN D ABNORMAL [None]
  - WITHDRAWAL SYNDROME [None]
  - WRONG TECHNIQUE IN DRUG USAGE PROCESS [None]
